FAERS Safety Report 8073641-0 (Version None)
Quarter: 2012Q1

REPORT INFORMATION
  Report Type: 
  Country: None (occurrence: None)
  Receive Date: 20120126
  Receipt Date: 20120120
  Transmission Date: 20120608
  Serious: Yes (Other)
  Sender: FDA-Public Use
  Company Number: US-PFIZER INC-2012017925

PATIENT
  Sex: Female

DRUGS (1)
  1. LIPITOR [Suspect]
     Dosage: UNK

REACTIONS (7)
  - DIZZINESS [None]
  - ARTHRITIS [None]
  - GAIT DISTURBANCE [None]
  - HYPERTENSION [None]
  - SKIN DISORDER [None]
  - JOINT INJURY [None]
  - SURGERY [None]
